FAERS Safety Report 5486488-6 (Version None)
Quarter: 2007Q4

REPORT INFORMATION
  Report Type: 
  Country: None (occurrence: None)
  Receive Date: 20071016
  Receipt Date: 20071011
  Transmission Date: 20080405
  Serious: Yes (Other)
  Sender: FDA-Public Use
  Company Number: B0491065A

PATIENT
  Age: 51 Year
  Sex: Male
  Weight: 83 kg

DRUGS (5)
  1. CEFAZOLIN [Suspect]
     Indication: INFECTION PROPHYLAXIS
     Dosage: 1G PER DAY
     Route: 042
  2. PROPOFOL [Concomitant]
     Route: 065
  3. FENTANYL [Concomitant]
     Route: 065
  4. VECURONIUM BROMIDE [Concomitant]
     Route: 065
  5. EPINEPHRINE [Concomitant]
     Route: 065

REACTIONS (2)
  - BLOOD PRESSURE DECREASED [None]
  - ERYTHEMA [None]
